FAERS Safety Report 8210256-5 (Version None)
Quarter: 2012Q1

REPORT INFORMATION
  Report Type: 
  Country: None (occurrence: None)
  Receive Date: 20120314
  Receipt Date: 20110812
  Transmission Date: 20120608
  Serious: No
  Sender: FDA-Public Use
  Company Number: US-ASTRAZENECA-2011SE38671

PATIENT
  Age: 78 Year
  Sex: Female

DRUGS (2)
  1. TOPROL-XL [Suspect]
     Route: 048
  2. METOPROLOL TARTRATE [Suspect]
     Route: 065

REACTIONS (6)
  - HYPERTENSION [None]
  - HEADACHE [None]
  - DRUG INEFFECTIVE [None]
  - CARDIAC DISORDER [None]
  - CONFUSIONAL STATE [None]
  - DRUG DOSE OMISSION [None]
